FAERS Safety Report 10454642 (Version 1)
Quarter: 2014Q3

REPORT INFORMATION
  Report Type: Spontaneous
  Country: US (occurrence: US)
  Receive Date: 20140915
  Receipt Date: 20140915
  Transmission Date: 20150326
  Serious: Yes (Death, Hospitalization, Other)
  Sender: FDA-Public Use
  Company Number: US-B.I. PHARMACEUTICALS,INC./RIDGEFIELD-2014-BI-43125BP

PATIENT
  Age: 66 Year
  Sex: Male

DRUGS (1)
  1. PRADAXA [Suspect]
     Active Substance: DABIGATRAN ETEXILATE MESYLATE
     Indication: ATRIAL FIBRILLATION
     Dosage: 300 MG
     Route: 065
     Dates: start: 20110803, end: 20111027

REACTIONS (9)
  - Pleural effusion [Unknown]
  - Ischaemic stroke [Fatal]
  - Sepsis [Recovered/Resolved]
  - Subdural haematoma [Unknown]
  - Urinary tract infection [Recovered/Resolved]
  - Renal failure acute [Not Recovered/Not Resolved]
  - Haemorrhagic transformation stroke [Fatal]
  - Respiratory failure [Unknown]
  - Anaemia [Unknown]

NARRATIVE: CASE EVENT DATE: 2011
